FAERS Safety Report 9306277 (Version 1)
Quarter: 2013Q2

REPORT INFORMATION
  Report Type: Spontaneous
  Country: US (occurrence: None)
  Receive Date: 20130429
  Receipt Date: 20130429
  Transmission Date: 20140414
  Serious: Yes (Other)
  Sender: FDA-Public Use
  Company Number: 2013035644

PATIENT
  Age: 3 Year
  Sex: Male

DRUGS (1)
  1. FACTOR VIII [Suspect]

REACTIONS (1)
  - Drug ineffective [None]
